FAERS Safety Report 9462598 (Version 3)
Quarter: 2013Q3

REPORT INFORMATION
  Report Type: Report from Study
  Country: CH (occurrence: CH)
  Receive Date: 20130816
  Receipt Date: 20130904
  Transmission Date: 20140515
  Serious: Yes (Hospitalization, Other)
  Sender: FDA-Public Use
  Company Number: CH-GENZYME-CLOF-1002747

PATIENT
  Age: 63 Year
  Sex: Male
  Weight: 69 kg

DRUGS (7)
  1. EVOLTRA [Suspect]
     Indication: ACUTE MYELOID LEUKAEMIA
     Dosage: 18 MG, UNK, (INDUCTION CYCLE 2)
     Route: 042
     Dates: start: 20130720
  2. EVOLTRA [Suspect]
     Dosage: 13 MG, UNK, (INDUCTION CYCLE 2)
     Route: 042
     Dates: start: 20130724
  3. CYTARABINE [Suspect]
     Indication: ACUTE MYELOID LEUKAEMIA
     Dosage: 3600 MG, UNK, (INDUCTION CYCLE 2)
     Route: 042
     Dates: start: 20130720
  4. CYTARABINE [Suspect]
     Dosage: 1400 MG, UNK, (INDUCTION CYCLE 2)
     Route: 042
     Dates: start: 20130724
  5. CYTARABINE [Suspect]
     Dosage: 1800 MG, UNK, (INDUCTION CYCLE 2)
     Route: 042
     Dates: start: 20130725
  6. AMSACRINE [Suspect]
     Indication: ACUTE MYELOID LEUKAEMIA
     Dosage: 216 MG, UNK, (INDUCTION CYCLE 2)
     Route: 042
     Dates: start: 20130723
  7. AMSACRINE [Suspect]
     Dosage: 54 MG, UNK, (INDUCTION CYCLE 2)
     Route: 042
     Dates: start: 20130725

REACTIONS (2)
  - Haemorrhage intracranial [Recovered/Resolved with Sequelae]
  - Thrombocytopenia [Unknown]
